FAERS Safety Report 12632310 (Version 2)
Quarter: 2016Q3

REPORT INFORMATION
  Report Type: Spontaneous
  Country: US (occurrence: US)
  Receive Date: 20160808
  Receipt Date: 20160808
  Transmission Date: 20161109
  Serious: No
  Sender: FDA-Public Use
  Company Number: US-BEH-2016062375

PATIENT
  Sex: Female
  Weight: 56 kg

DRUGS (20)
  1. HIZENTRA [Suspect]
     Active Substance: HUMAN IMMUNOGLOBULIN G
     Indication: HYPOGAMMAGLOBULINAEMIA
     Route: 058
  2. AMOXICILLIN. [Concomitant]
     Active Substance: AMOXICILLIN
  3. TRAZODONE [Concomitant]
     Active Substance: TRAZODONE HYDROCHLORIDE
  4. HIZENTRA [Suspect]
     Active Substance: HUMAN IMMUNOGLOBULIN G
     Route: 058
  5. BUSPIRONE [Concomitant]
     Active Substance: BUSPIRONE HYDROCHLORIDE
  6. DIPHENHYDRAMINE. [Concomitant]
     Active Substance: DIPHENHYDRAMINE
  7. LIDOCAINE. [Concomitant]
     Active Substance: LIDOCAINE
  8. NORVASC [Concomitant]
     Active Substance: AMLODIPINE BESYLATE
  9. OXYBUTIN [Concomitant]
     Active Substance: OXYBUTYNIN
  10. FLONASE [Concomitant]
     Active Substance: FLUTICASONE PROPIONATE
  11. JUNEL [Concomitant]
     Active Substance: ETHINYL ESTRADIOL\NORETHINDRONE ACETATE
  12. HIZENTRA [Suspect]
     Active Substance: HUMAN IMMUNOGLOBULIN G
     Indication: CYTOGENETIC ABNORMALITY
     Route: 058
     Dates: start: 20150729
  13. CULTURELLE [Concomitant]
     Active Substance: LACTOBACILLUS RHAMNOSUS
  14. TRILEPTAL [Concomitant]
     Active Substance: OXCARBAZEPINE
  15. ZYRTEC [Concomitant]
     Active Substance: CETIRIZINE HYDROCHLORIDE
  16. VITAMIN D [Concomitant]
     Active Substance: CHOLECALCIFEROL
  17. MONTELUKAST [Concomitant]
     Active Substance: MONTELUKAST SODIUM
  18. CALCIUM [Concomitant]
     Active Substance: CALCIUM
  19. ACETAMINOPHEN. [Concomitant]
     Active Substance: ACETAMINOPHEN
  20. EPIPEN [Concomitant]
     Active Substance: EPINEPHRINE

REACTIONS (1)
  - Malaise [Unknown]
